FAERS Safety Report 21194626 (Version 1)
Quarter: 2022Q3

REPORT INFORMATION
  Report Type: Spontaneous
  Country: US (occurrence: None)
  Receive Date: 20220809
  Receipt Date: 20220809
  Transmission Date: 20221026
  Serious: No
  Sender: FDA-Public Use
  Company Number: None

PATIENT
  Sex: Female

DRUGS (1)
  1. KISQALI [Suspect]
     Active Substance: RIBOCICLIB
     Indication: Breast cancer
     Dosage: DOSE REDUCTION FOR KISQALI FROM 600MG/DAY TO 400MG/DAY, ?DAILY 21 DAYS BY MOUTH
     Route: 048
     Dates: start: 20220614

REACTIONS (1)
  - Pain [None]
